FAERS Safety Report 24565475 (Version 1)
Quarter: 2024Q4

REPORT INFORMATION
  Report Type: Spontaneous
  Country: UA (occurrence: UA)
  Receive Date: 20241030
  Receipt Date: 20241030
  Transmission Date: 20250115
  Serious: Yes (Other)
  Sender: RANBAXY
  Company Number: UA-SUN PHARMACEUTICAL INDUSTRIES LTD-2024R1-475826

PATIENT
  Age: 58 Year
  Sex: Male

DRUGS (1)
  1. AZITHROMYCIN [Suspect]
     Active Substance: AZITHROMYCIN
     Indication: COVID-19
     Dosage: 500 MILLIGRAM
     Route: 065

REACTIONS (1)
  - Condition aggravated [Unknown]
